FAERS Safety Report 5994850-8 (Version None)
Quarter: 2008Q4

REPORT INFORMATION
  Report Type: 
  Country: None (occurrence: None)
  Receive Date: 20081212
  Receipt Date: 20080916
  Transmission Date: 20090506
  Serious: No
  Sender: FDA-Public Use
  Company Number: US-ABBOTT-08P-163-0476690-00

PATIENT
  Sex: Female
  Weight: 61.29 kg

DRUGS (11)
  1. HUMIRA [Suspect]
     Indication: CROHN'S DISEASE
     Route: 058
     Dates: start: 20080807
  2. HUMIRA [Suspect]
  3. HUMIRA [Suspect]
     Indication: ARTHRITIS
  4. ZOLPIDEM TARTRATE [Concomitant]
     Indication: DRUG USE FOR UNKNOWN INDICATION
     Route: 048
  5. DULOXETINE HYDROCHLORIDE [Concomitant]
     Indication: DRUG USE FOR UNKNOWN INDICATION
     Route: 048
  6. VALACYCLOVIR [Concomitant]
     Indication: APHTHOUS STOMATITIS
     Route: 048
  7. SULFASALAZINE [Concomitant]
     Indication: DRUG USE FOR UNKNOWN INDICATION
     Dosage: 2-50 MG PILLS THREE TIMES A DAY
     Route: 048
  8. PREGABALIN [Concomitant]
     Indication: DRUG USE FOR UNKNOWN INDICATION
     Dosage: 2 - 75 MG CAPSULES TWICE A DAY
     Route: 048
  9. PREDNISONE TAB [Concomitant]
     Indication: CROHN'S DISEASE
     Route: 048
  10. OXYCODONE HCL [Concomitant]
     Indication: PAIN
     Route: 048
  11. FENTANYL TRANSDERMAL SYSTEM [Concomitant]
     Indication: PAIN
     Route: 061

REACTIONS (2)
  - INJECTION SITE HAEMATOMA [None]
  - INJECTION SITE HAEMORRHAGE [None]
